FAERS Safety Report 14672056 (Version 2)
Quarter: 2018Q2

REPORT INFORMATION
  Report Type: Spontaneous
  Country: DK (occurrence: DK)
  Receive Date: 20180323
  Receipt Date: 20180411
  Transmission Date: 20180711
  Serious: Yes (Disabling)
  Sender: FDA-Public Use
  Company Number: DK-KADMON PHARMACEUTICALS, LLC-KAD-201803-01267

PATIENT
  Age: 55 Year
  Sex: Male

DRUGS (15)
  1. HJERTEALBY [Concomitant]
     Indication: THROMBOSIS PROPHYLAXIS
     Route: 048
     Dates: start: 20160531
  2. PRIMPERAN [Concomitant]
     Active Substance: METOCLOPRAMIDE HYDROCHLORIDE
     Indication: NAUSEA
  3. LIPISTAD 40 MG [Concomitant]
     Indication: HYPERCHOLESTEROLAEMIA
     Route: 048
     Dates: start: 20170626
  4. COLECALCIFEROL [Concomitant]
     Active Substance: CHOLECALCIFEROL
     Indication: VITAMIN D DEFICIENCY
  5. MAREVAN 2.5 MG [Concomitant]
     Indication: ANTICOAGULANT THERAPY
     Route: 048
     Dates: start: 20170908
  6. PANODIL 500 MG [Concomitant]
     Indication: PAIN
     Dosage: 2 TABLETS REQUIRED, MAXIMUM 4 TIMES PER DAY
     Route: 048
     Dates: start: 20180127
  7. ANCOZAN 100 MG [Concomitant]
     Indication: HYPERTENSION
     Route: 048
     Dates: start: 20170711
  8. EXVIERA 250 MG [Suspect]
     Active Substance: DASABUVIR
     Indication: HEPATITIS C
     Dosage: ONE TABLET AT 8 AM AND ONE TABLET AT 5 PM
     Route: 048
     Dates: start: 20180119, end: 20180119
  9. NOVORAPID [Concomitant]
     Active Substance: INSULIN ASPART
     Indication: DIABETES MELLITUS
  10. MOVICOL [Concomitant]
     Active Substance: POLYETHYLENE GLYCOL 3350\POTASSIUM CHLORIDE\SODIUM BICARBONATE\SODIUM CHLORIDE
     Indication: CONSTIPATION
     Route: 048
  11. TRESIBA 100 FLEXTOUCH [Concomitant]
     Indication: DIABETES MELLITUS
     Route: 058
     Dates: start: 20160531
  12. CARVEDILOL TEVA 25 MG [Concomitant]
     Indication: HYPERTENSION
     Route: 048
     Dates: start: 20170919
  13. VIEKIRAX 12.5 MG/75 MG/50 MG [Suspect]
     Active Substance: OMBITASVIR\PARITAPREVIR\RITONAVIR
     Indication: CHRONIC HEPATITIS C
     Dosage: TABLET
     Route: 048
     Dates: start: 20180109, end: 20180119
  14. RIBAVIRIN 200 MG [Suspect]
     Active Substance: RIBAVIRIN
     Indication: CHRONIC HEPATITIS C
     Dosage: TABLET
     Route: 048
     Dates: start: 20180109, end: 20180119
  15. FURIX 250 MG [Concomitant]
     Indication: DIURETIC THERAPY
     Dosage: TWO TABLETS IN THE MORNING, 1 AT NOON, AND 1 TABLET IN THE EVENING
     Route: 048
     Dates: start: 20170630

REACTIONS (2)
  - Vitrectomy [Recovered/Resolved]
  - Vitreous haemorrhage [Recovered/Resolved with Sequelae]

NARRATIVE: CASE EVENT DATE: 20180119
